FAERS Safety Report 4783357-1 (Version None)
Quarter: 2005Q3

REPORT INFORMATION
  Report Type: 
  Country: None (occurrence: None)
  Receive Date: 20050929
  Receipt Date: 20050921
  Transmission Date: 20060218
  Serious: Yes (Hospitalization)
  Sender: FDA-Public Use
  Company Number: DE-ROCHE-418377

PATIENT
  Age: 69 Year
  Sex: Female
  Weight: 74 kg

DRUGS (2)
  1. CAPECITABINE [Suspect]
     Indication: BREAST CANCER
     Dosage: TWO WEEKS TREATMENT FOLLOWED BY ONE WEEK REST. DOSE NOT REPORTED.
     Route: 048
     Dates: start: 20050816, end: 20050916
  2. BORTEZOMIB [Suspect]
     Indication: BREAST CANCER
     Dosage: GIVEN ON DAYS 1, 4, 8 AND 11 OF EACH THREE WEEK CYCLE. DOSE NOT REPORTED.
     Route: 042
     Dates: start: 20050816, end: 20050916

REACTIONS (4)
  - DEHYDRATION [None]
  - DIARRHOEA [None]
  - GAIT DISTURBANCE [None]
  - HYPOKALAEMIA [None]
